FAERS Safety Report 5288339-1 (Version None)
Quarter: 2007Q2

REPORT INFORMATION
  Report Type: 
  Country: None (occurrence: None)
  Receive Date: 20070405
  Receipt Date: 20070330
  Transmission Date: 20071010
  Serious: Yes (Hospitalization)
  Sender: FDA-Public Use
  Company Number: 2007AP01683

PATIENT
  Age: 19986 Day
  Sex: Male

DRUGS (1)
  1. FOSCAVIR [Suspect]
     Indication: CYTOMEGALOVIRUS CHORIORETINITIS
     Route: 041
     Dates: start: 20050916, end: 20050928

REACTIONS (1)
  - INTERSTITIAL LUNG DISEASE [None]
